FAERS Safety Report 9804108 (Version 1)
Quarter: 2014Q1

REPORT INFORMATION
  Report Type: Spontaneous
  Country: US (occurrence: US)
  Receive Date: 20140108
  Receipt Date: 20140108
  Transmission Date: 20141002
  Serious: Yes (Hospitalization)
  Sender: FDA-Public Use
  Company Number: US-SA-2014SA001765

PATIENT
  Sex: 0

DRUGS (1)
  1. RENVELA [Suspect]
     Indication: PRODUCT USED FOR UNKNOWN INDICATION
     Dosage: RENVELA POWDER 2 WITH MEALS AND 1 WITH SNACKS
     Route: 065

REACTIONS (2)
  - Diverticulum [Unknown]
  - Constipation [Not Recovered/Not Resolved]
